FAERS Safety Report 8803414 (Version 1)
Quarter: 2012Q4

REPORT INFORMATION
  Report Type: 
  Country: AR (occurrence: AR)
  Receive Date: 20120924
  Receipt Date: 20120924
  Transmission Date: 20130627
  Serious: Yes (Death, Hospitalization)
  Sender: FDA-Public Use
  Company Number: PHHY2012AR082411

PATIENT
  Sex: Female

DRUGS (1)
  1. EXELON PATCH [Suspect]
     Indication: DEMENTIA ALZHEIMER^S TYPE
     Dosage: 1 DF, daily
     Route: 062

REACTIONS (4)
  - Cardiac arrest [Fatal]
  - Cardiac failure [Unknown]
  - Cardiovascular disorder [Unknown]
  - Pleural effusion [Unknown]
